FAERS Safety Report 8336926-6 (Version None)
Quarter: 2012Q2

REPORT INFORMATION
  Report Type: 
  Country: None (occurrence: None)
  Receive Date: 20120504
  Receipt Date: 20120426
  Transmission Date: 20120825
  Serious: Yes (Hospitalization)
  Sender: FDA-Public Use
  Company Number: ES-SANOFI-AVENTIS-2012SA029832

PATIENT
  Age: 89 Year
  Sex: Male

DRUGS (6)
  1. ALDACTONE [Suspect]
     Dosage: PHARMACEUTICAL FORM (DOSAGE FORM) 9
     Route: 048
     Dates: start: 20110325, end: 20110404
  2. ALDACTONE [Suspect]
     Dosage: PHARMACEUTICAL FORM (DOSAGE FORM) 9
     Route: 048
     Dates: start: 20101101, end: 20110221
  3. FUROSEMIDE [Suspect]
     Indication: CARDIAC FAILURE
     Dosage: PHARMACEUTICAL FORM (DOSAGE FORM) 245
     Route: 048
     Dates: start: 20110325, end: 20110404
  4. ALDACTONE [Suspect]
     Indication: CARDIAC FAILURE
     Dosage: PHARMACEUTICAL FORM (DOSAGE FORM) 9
     Route: 048
     Dates: start: 20110303, end: 20110325
  5. TORSEMIDE [Concomitant]
     Indication: CARDIAC FAILURE
     Route: 048
     Dates: start: 20060301, end: 20110221
  6. FUROSEMIDE [Suspect]
     Dosage: PHARMACEUTICAL FORM (DOSAGE FORM) 245
     Route: 048
     Dates: start: 20110303, end: 20110325

REACTIONS (1)
  - RENAL FAILURE ACUTE [None]
